FAERS Safety Report 16947348 (Version 2)
Quarter: 2019Q4

REPORT INFORMATION
  Report Type: Spontaneous
  Country: AU (occurrence: AU)
  Receive Date: 20191022
  Receipt Date: 20191204
  Transmission Date: 20200122
  Serious: Yes (Other)
  Sender: FDA-Public Use
  Company Number: AU-ALLERGAN-1942084US

PATIENT
  Sex: Female

DRUGS (3)
  1. PREDNEFRIN FORTE [Concomitant]
     Active Substance: PHENYLEPHRINE HYDROCHLORIDE\PREDNISOLONE ACETATE
     Route: 061
  2. OZURDEX [Suspect]
     Active Substance: DEXAMETHASONE
     Indication: CYSTOID MACULAR OEDEMA
     Dosage: 0.7 MG, SINGLE
     Route: 031
     Dates: start: 20180808, end: 20180808
  3. PREDNISOLONE PHOSPHATE [Concomitant]
     Indication: CYSTOID MACULAR OEDEMA
     Route: 061

REACTIONS (3)
  - Ophthalmic herpes simplex [Recovered/Resolved with Sequelae]
  - Blebitis [Recovered/Resolved with Sequelae]
  - Ulcerative keratitis [Recovered/Resolved with Sequelae]

NARRATIVE: CASE EVENT DATE: 20190828
